FAERS Safety Report 10950251 (Version 1)
Quarter: 2015Q1

REPORT INFORMATION
  Report Type: Spontaneous
  Country: US (occurrence: US)
  Receive Date: 20150324
  Receipt Date: 20150324
  Transmission Date: 20150721
  Serious: Yes (Hospitalization)
  Sender: FDA-Public Use
  Company Number: CHPA2015US003957

PATIENT

DRUGS (1)
  1. EXCEDRIN MIGRAINE [Suspect]
     Active Substance: ACETAMINOPHEN\ASPIRIN\CAFFEINE
     Indication: FIBROMYALGIA
     Dosage: 2 DF, QD (2 EVERY MORNING FOR SEVERAL WEEKS )
     Route: 048

REACTIONS (4)
  - Gastric ulcer [Unknown]
  - Therapeutic response unexpected [Unknown]
  - Pain [Unknown]
  - Off label use [Unknown]
